FAERS Safety Report 4489912-0 (Version None)
Quarter: 2004Q4

REPORT INFORMATION
  Report Type: 
  Country: None (occurrence: None)
  Receive Date: 20041026
  Receipt Date: 20041008
  Transmission Date: 20050328
  Serious: Yes (Other)
  Sender: FDA-Public Use
  Company Number: DSA_25192_2004

PATIENT
  Age: 61 Year
  Sex: Female
  Weight: 75 kg

DRUGS (1)
  1. LORAX [Suspect]
     Indication: ANXIETY
     Dosage: 1 MG Q DAY PO
     Route: 048
     Dates: start: 20030101

REACTIONS (3)
  - ASTHENIA [None]
  - BACK PAIN [None]
  - RESPIRATORY DEPRESSION [None]
